FAERS Safety Report 10608822 (Version 14)
Quarter: 2015Q4

REPORT INFORMATION
  Report Type: Spontaneous
  Country: US (occurrence: US)
  Receive Date: 20141125
  Receipt Date: 20151221
  Transmission Date: 20160304
  Serious: Yes (Death, Hospitalization, Other)
  Sender: FDA-Public Use
  Company Number: US-GLAXOSMITHKLINE-A1070394A

PATIENT
  Age: 66 Year
  Sex: Female

DRUGS (15)
  1. FLOLAN [Suspect]
     Active Substance: EPOPROSTENOL SODIUM
     Indication: PULMONARY HYPERTENSION
     Dosage: 45 NG/KG/MIN
     Dates: start: 20140314
  2. FLOLAN [Suspect]
     Active Substance: EPOPROSTENOL SODIUM
     Dosage: UNK
  3. FLOLAN [Suspect]
     Active Substance: EPOPROSTENOL SODIUM
     Indication: COR PULMONALE CHRONIC
     Dosage: DOSE: 16 NG/KG/MIN, CONCENTRATION: 15,000 NG/ML, PUMP RATE: 69 ML/DAY, VIAL STRENGTH: 1.5 MG. 2[...]
     Route: 042
     Dates: start: 20140313
  4. FLOLAN [Suspect]
     Active Substance: EPOPROSTENOL SODIUM
     Dosage: 35 NG/KG/MIN CONTINUOUS; CONCENTRATION: 30,000 NG/ML; PUMP RATE: 76 ML/DAY; VIAL STRENGTH: 1.5 MG
     Route: 042
     Dates: start: 20140314
  5. FLOLAN [Suspect]
     Active Substance: EPOPROSTENOL SODIUM
     Dosage: 35 NG/KG/MIN CONTINUOUS; CONCENTRATION: 30,000 NG/ML; PUMP RATE: 76 ML/DAY; VIAL STRENGTH: 1.5 MG
  6. FLOLAN [Suspect]
     Active Substance: EPOPROSTENOL SODIUM
     Dosage: 35 NG/KG/MIN CONTINUOUS
     Route: 042
  7. FLOLAN [Suspect]
     Active Substance: EPOPROSTENOL SODIUM
     Dosage: 35 NG/KG/MIN (CONCENTRATION 30,000 NG/ML, PUMP RATE 76 ML/DAY, VIAL STRENGTH 1.5 MG), CO
  8. FLOLAN [Suspect]
     Active Substance: EPOPROSTENOL SODIUM
     Dosage: UNK, CO
     Dates: start: 20140313
  9. OPSUMIT [Concomitant]
     Active Substance: MACITENTAN
  10. FLOLAN [Suspect]
     Active Substance: EPOPROSTENOL SODIUM
     Dosage: 35 NG/KG/MIN, CO
  11. FLOLAN [Suspect]
     Active Substance: EPOPROSTENOL SODIUM
     Dosage: 35 NG/KG/MIN CONTINUOUSLY
  12. FLOLAN [Suspect]
     Active Substance: EPOPROSTENOL SODIUM
     Dosage: UNK
  13. TRACLEER [Concomitant]
     Active Substance: BOSENTAN
  14. FLOLAN [Suspect]
     Active Substance: EPOPROSTENOL SODIUM
     Dosage: 37 NG/KG/MIN (CONCENTRATION 30000 NG/ML; 80 ML/DAY; VIAL STRENGTH 1.5 MG), CO
     Route: 042
  15. ADEMPAS [Suspect]
     Active Substance: RIOCIGUAT
     Indication: PRODUCT USED FOR UNKNOWN INDICATION
     Dosage: 1 MG, TID
     Route: 065

REACTIONS (20)
  - Death [Fatal]
  - Hospitalisation [Unknown]
  - Blood pressure abnormal [Unknown]
  - Flatulence [Unknown]
  - Fall [Unknown]
  - Seizure [Unknown]
  - Upper limb fracture [Unknown]
  - Head injury [Unknown]
  - Pain in extremity [Unknown]
  - Generalised oedema [Recovered/Resolved]
  - Adverse event [Unknown]
  - Memory impairment [Unknown]
  - Ear infection [Unknown]
  - Epistaxis [Unknown]
  - Hypotension [Unknown]
  - Gingivitis [Unknown]
  - Syncope [Unknown]
  - Dyspnoea [Unknown]
  - Peripheral swelling [Unknown]
  - Pulmonary arterial hypertension [Unknown]

NARRATIVE: CASE EVENT DATE: 20150701
